FAERS Safety Report 8172681-0 (Version None)
Quarter: 2012Q1

REPORT INFORMATION
  Report Type: 
  Country: None (occurrence: None)
  Receive Date: 20120229
  Receipt Date: 20120221
  Transmission Date: 20120608
  Serious: Yes (Other)
  Sender: FDA-Public Use
  Company Number: US-ABBOTT-12P-163-0902123-00

PATIENT
  Age: 41 Year
  Sex: Female

DRUGS (2)
  1. VICODIN [Concomitant]
     Indication: PAIN
  2. HUMIRA [Suspect]
     Indication: CROHN'S DISEASE
     Dates: start: 20111201

REACTIONS (4)
  - INSOMNIA [None]
  - CROHN'S DISEASE [None]
  - ANAL FISTULA [None]
  - ANAL ABSCESS [None]
